FAERS Safety Report 4542288-2 (Version None)
Quarter: 2004Q4

REPORT INFORMATION
  Report Type: 
  Country: None (occurrence: None)
  Receive Date: 20041227
  Receipt Date: 20041213
  Transmission Date: 20050328
  Serious: Yes (Life-Threatening, Hospitalization, Disabling, Other)
  Sender: FDA-Public Use
  Company Number: 2004093175

PATIENT
  Age: 71 Year
  Sex: Male
  Weight: 83.9154 kg

DRUGS (6)
  1. LIPITOR [Suspect]
     Indication: BLOOD CHOLESTEROL INCREASED
     Dosage: 10 MG (10 MG, 1 IN 1 D), ORAL
     Route: 048
     Dates: start: 20030227
  2. TAMSULOSIN HYDROCHLORIDE (TAMSULOSIN HYDROCHLORIDE) [Concomitant]
  3. RAMIPRIL [Concomitant]
  4. WARFARIN (WARFARIN) [Concomitant]
  5. CARVEDILOL [Concomitant]
  6. ASPIRIN [Concomitant]

REACTIONS (45)
  - AORTIC VALVE DISEASE [None]
  - AORTIC VALVE INCOMPETENCE [None]
  - ARRHYTHMIA [None]
  - ARTERIAL STENT INSERTION [None]
  - ATRIOVENTRICULAR BLOCK FIRST DEGREE [None]
  - ATRIOVENTRICULAR BLOCK SECOND DEGREE [None]
  - BALANCE DISORDER [None]
  - BLOOD ALBUMIN INCREASED [None]
  - BLOOD GLUCOSE INCREASED [None]
  - BLOOD HOMOCYSTEINE INCREASED [None]
  - BLOOD PRESSURE SYSTOLIC INCREASED [None]
  - BLOOD TRIGLYCERIDES INCREASED [None]
  - BRAIN DAMAGE [None]
  - BREATH SOUNDS DECREASED [None]
  - BUNDLE BRANCH BLOCK LEFT [None]
  - BUNDLE BRANCH BLOCK RIGHT [None]
  - CAROTID ARTERY STENOSIS [None]
  - CEREBRAL ARTERY OCCLUSION [None]
  - CEREBRAL ATROPHY [None]
  - CEREBROVASCULAR ACCIDENT [None]
  - CORONARY ARTERY DISEASE [None]
  - DIVERTICULITIS [None]
  - DYSURIA [None]
  - EJECTION FRACTION DECREASED [None]
  - FALL [None]
  - GLYCOSYLATED HAEMOGLOBIN INCREASED [None]
  - HEADACHE [None]
  - HIGH DENSITY LIPOPROTEIN DECREASED [None]
  - HYDROCEPHALUS [None]
  - ISCHAEMIC CARDIOMYOPATHY [None]
  - MITRAL VALVE INCOMPETENCE [None]
  - MOVEMENT DISORDER [None]
  - MYOCARDIAL INFARCTION [None]
  - PALPITATIONS [None]
  - POLYURIA [None]
  - SINUS BRADYCARDIA [None]
  - STOOLS WATERY [None]
  - TONGUE COATED [None]
  - TRANSIENT ISCHAEMIC ATTACK [None]
  - TRICUSPID VALVE INCOMPETENCE [None]
  - URINARY TRACT INFECTION [None]
  - URINE FLOW DECREASED [None]
  - VENTRICULAR EXTRASYSTOLES [None]
  - VENTRICULAR HYPERTROPHY [None]
  - VENTRICULAR TACHYCARDIA [None]
